FAERS Safety Report 5032183-7 (Version None)
Quarter: 2006Q2

REPORT INFORMATION
  Report Type: 
  Country: None (occurrence: None)
  Receive Date: 20060619
  Receipt Date: 20060609
  Transmission Date: 20061013
  Serious: Yes (Hospitalization)
  Sender: FDA-Public Use
  Company Number: 2006070908

PATIENT
  Age: 46 Year
  Sex: Male

DRUGS (10)
  1. ATORVASTATIN CALCIUM [Suspect]
     Indication: ANGIOPLASTY
     Dosage: 80 MG (80 MG, 1 IN 1 D), ORAL
     Route: 048
     Dates: start: 20060429, end: 20060529
  2. ATORVASTATIN CALCIUM [Suspect]
     Indication: CORONARY ARTERY DISEASE
     Dosage: 80 MG (80 MG, 1 IN 1 D), ORAL
     Route: 048
     Dates: start: 20060429, end: 20060529
  3. PLAVIX [Concomitant]
  4. ASPIRIN [Concomitant]
  5. AMARYL [Concomitant]
  6. GLUCOPHAGE [Concomitant]
  7. ASPIRIN [Concomitant]
  8. METOPROLOL SUCCINATE [Concomitant]
  9. ENALAPRIL MALEATE [Concomitant]
  10. METFORMIN [Concomitant]

REACTIONS (2)
  - BONE PAIN [None]
  - NECK PAIN [None]
